FAERS Safety Report 5311185-7 (Version None)
Quarter: 2007Q2

REPORT INFORMATION
  Report Type: 
  Country: None (occurrence: None)
  Receive Date: 20070430
  Receipt Date: 20070420
  Transmission Date: 20071010
  Serious: Yes (Other)
  Sender: FDA-Public Use
  Company Number: US-AMGEN-US220777

PATIENT
  Sex: Male

DRUGS (2)
  1. ENBREL [Suspect]
     Indication: DRUG USE FOR UNKNOWN INDICATION
     Route: 065
     Dates: start: 20060601
  2. METHOTREXATE [Concomitant]

REACTIONS (1)
  - SUICIDAL IDEATION [None]
